FAERS Safety Report 7996313-7 (Version None)
Quarter: 2011Q4

REPORT INFORMATION
  Report Type: 
  Country: None (occurrence: None)
  Receive Date: 20111220
  Receipt Date: 20111214
  Transmission Date: 20120403
  Serious: Yes (Hospitalization)
  Sender: FDA-Public Use
  Company Number: US-ABBOTT-11P-163-0883456-00

PATIENT
  Sex: Male

DRUGS (6)
  1. HUMIRA [Suspect]
     Indication: PSORIATIC ARTHROPATHY
     Route: 058
     Dates: start: 20110701, end: 20111201
  2. SULFASALAZINE [Concomitant]
     Indication: PSORIATIC ARTHROPATHY
  3. DICLOFENAC [Concomitant]
     Indication: PSORIATIC ARTHROPATHY
  4. ANDROGEL [Concomitant]
     Indication: BLOOD TESTOSTERONE DECREASED
  5. ACTONEL [Concomitant]
     Indication: OSTEOPOROSIS
  6. GABAPENTIN [Concomitant]
     Indication: PSORIATIC ARTHROPATHY

REACTIONS (7)
  - NAUSEA [None]
  - MALAISE [None]
  - CHILLS [None]
  - IMMUNE SYSTEM DISORDER [None]
  - VOMITING [None]
  - VIRAL INFECTION [None]
  - ASTHENIA [None]
